FAERS Safety Report 7346861-8 (Version None)
Quarter: 2011Q1

REPORT INFORMATION
  Report Type: 
  Country: None (occurrence: None)
  Receive Date: 20110311
  Receipt Date: 20110225
  Transmission Date: 20110831
  Serious: Yes (Other)
  Sender: FDA-Public Use
  Company Number: US-JNJFOC-20110300229

PATIENT
  Sex: Female
  Weight: 68.04 kg

DRUGS (4)
  1. PERCOCET [Concomitant]
     Indication: BREAKTHROUGH PAIN
     Route: 048
  2. REMICADE [Suspect]
     Indication: SCLERODERMA
     Route: 042
  3. COUMADIN [Concomitant]
     Indication: PROPHYLAXIS
     Route: 048
  4. REMICADE [Suspect]
     Indication: RHEUMATOID ARTHRITIS
     Route: 042

REACTIONS (3)
  - BLOOD GLUCOSE INCREASED [None]
  - LUNG NEOPLASM [None]
  - CHEST PAIN [None]
